FAERS Safety Report 20797216 (Version 2)
Quarter: 2022Q3

REPORT INFORMATION
  Report Type: Spontaneous
  Country: US (occurrence: US)
  Receive Date: 20220506
  Receipt Date: 20220705
  Transmission Date: 20221026
  Serious: No
  Sender: FDA-Public Use
  Company Number: US-BRISTOL-MYERS SQUIBB COMPANY-2022-028277

PATIENT
  Age: 64 Year
  Sex: Female
  Weight: 78.93 kg

DRUGS (3)
  1. THALOMID [Suspect]
     Active Substance: THALIDOMIDE
     Indication: Chronic cutaneous lupus erythematosus
     Dosage: DOSE: 50 MILLIGRAM, FREQ: DAILY
     Route: 048
     Dates: start: 20220126
  2. THALOMID [Suspect]
     Active Substance: THALIDOMIDE
     Indication: Hidradenitis
     Route: 048
     Dates: start: 20220126
  3. THALOMID [Suspect]
     Active Substance: THALIDOMIDE
     Indication: Dermatitis

REACTIONS (2)
  - Somnolence [Not Recovered/Not Resolved]
  - Intentional product use issue [Unknown]
